FAERS Safety Report 8059761-5 (Version None)
Quarter: 2012Q1

REPORT INFORMATION
  Report Type: 
  Country: None (occurrence: None)
  Receive Date: 20120120
  Receipt Date: 20120119
  Transmission Date: 20120608
  Serious: Yes (Death, Hospitalization)
  Sender: FDA-Public Use
  Company Number: DE-BAYER-2011-109208

PATIENT
  Sex: Male
  Weight: 66 kg

DRUGS (3)
  1. BLINDED SORAFENIB (RAF KINASE INHIBITOR) [Suspect]
     Indication: METASTATIC OCULAR MELANOMA
     Dosage: UNK
     Dates: start: 20110928, end: 20111103
  2. SORAFENIB (RAF KINASE INHIBITOR) [Suspect]
     Indication: METASTATIC OCULAR MELANOMA
     Dosage: UNK
     Route: 048
     Dates: start: 20110802, end: 20110927
  3. SORAFENIB (RAF KINASE INHIBITOR) [Suspect]
     Dosage: UNK
     Dates: start: 20111112

REACTIONS (2)
  - RENAL FAILURE [None]
  - HEPATIC FAILURE [None]
